FAERS Safety Report 17430470 (Version 6)
Quarter: 2023Q1

REPORT INFORMATION
  Report Type: Spontaneous
  Country: US (occurrence: US)
  Receive Date: 20200218
  Receipt Date: 20230221
  Transmission Date: 20230418
  Serious: Yes (Other)
  Sender: FDA-Public Use
  Company Number: US-PFIZER INC-2020058399

PATIENT
  Age: 77 Year
  Sex: Female

DRUGS (2)
  1. PRISTIQ EXTENDED-RELEASE [Suspect]
     Active Substance: DESVENLAFAXINE SUCCINATE
     Dosage: 75 MG, 1X/DAY (SIG: TAKE 3 TABS QD (ONCE DAILY))
     Route: 048
  2. PRISTIQ EXTENDED-RELEASE [Suspect]
     Active Substance: DESVENLAFAXINE SUCCINATE
     Dosage: 25 MG, 3X/DAY

REACTIONS (4)
  - Suicidal ideation [Unknown]
  - Crying [Unknown]
  - Stress [Unknown]
  - Off label use [Unknown]
